FAERS Safety Report 8731150 (Version 4)
Quarter: 2012Q4

REPORT INFORMATION
  Report Type: 
  Country: US (occurrence: US)
  Receive Date: 20120820
  Receipt Date: 20120927
  Transmission Date: 20130627
  Serious: Yes (Other)
  Sender: FDA-Public Use
  Company Number: US-BIOGENIDEC-2012BI031147

PATIENT
  Age: 51 Year
  Sex: Female

DRUGS (7)
  1. TYSABRI [Suspect]
     Indication: MULTIPLE SCLEROSIS
     Route: 042
     Dates: start: 20120801
  2. AVONEX [Concomitant]
     Indication: MULTIPLE SCLEROSIS
     Route: 030
     Dates: start: 20071001
  3. TOVIAZ [Concomitant]
     Indication: NEUROGENIC BLADDER
  4. AMPYRA [Concomitant]
     Indication: GAIT DISTURBANCE
  5. VIT D [Concomitant]
  6. CALCIUM [Concomitant]
  7. MVI [Concomitant]

REACTIONS (6)
  - Haematochezia [Recovered/Resolved]
  - Colitis ischaemic [Recovered/Resolved]
  - Diarrhoea [Not Recovered/Not Resolved]
  - Diarrhoea haemorrhagic [Not Recovered/Not Resolved]
  - Abdominal pain upper [Not Recovered/Not Resolved]
  - Escherichia infection [Recovered/Resolved]
